FAERS Safety Report 16753677 (Version 1)
Quarter: 2019Q3

REPORT INFORMATION
  Report Type: Spontaneous
  Country: US (occurrence: US)
  Receive Date: 20190710
  Receipt Date: 20190710
  Transmission Date: 20191005
  Serious: No
  Sender: FDA-Public Use
  Company Number: None

PATIENT
  Age: 30 Year
  Sex: Female
  Weight: 108.86 kg

DRUGS (4)
  1. ENBREL [Suspect]
     Active Substance: ETANERCEPT
     Indication: OSTEOPOROSIS
     Route: 058
     Dates: start: 201712
  2. ENBREL [Suspect]
     Active Substance: ETANERCEPT
     Indication: POLYNEUROPATHY IDIOPATHIC PROGRESSIVE
     Route: 058
     Dates: start: 201712
  3. ENBREL [Suspect]
     Active Substance: ETANERCEPT
     Indication: RASH PAPULOSQUAMOUS
     Route: 058
     Dates: start: 201712
  4. ENBREL [Suspect]
     Active Substance: ETANERCEPT
     Indication: PSORIATIC ARTHROPATHY
     Route: 058
     Dates: start: 201712

REACTIONS (2)
  - Chest pain [None]
  - Nasopharyngitis [None]
